FAERS Safety Report 6088730-X (Version None)
Quarter: 2009Q1

REPORT INFORMATION
  Report Type: 
  Country: None (occurrence: None)
  Receive Date: 20090220
  Receipt Date: 20090220
  Transmission Date: 20090719
  Serious: Yes (Life-Threatening, Hospitalization)
  Sender: FDA-Public Use
  Company Number: None

PATIENT
  Age: 46 Year
  Sex: Female
  Weight: 127.0072 kg

DRUGS (1)
  1. PRILOSEC OTC [Suspect]
     Indication: GASTROOESOPHAGEAL REFLUX DISEASE
     Dosage: 1 DOSE -1 TABLET- ONCE PO
     Route: 048
     Dates: start: 20090212, end: 20090212

REACTIONS (3)
  - ANAPHYLACTIC SHOCK [None]
  - CYANOSIS [None]
  - PARAESTHESIA [None]
